FAERS Safety Report 23920831 (Version 1)
Quarter: 2024Q2

REPORT INFORMATION
  Report Type: Spontaneous
  Country: PT (occurrence: PT)
  Receive Date: 20240530
  Receipt Date: 20240530
  Transmission Date: 20240715
  Serious: Yes (Other)
  Sender: FDA-Public Use
  Company Number: PT-JNJFOC-20240563964

PATIENT
  Age: 47 Year
  Sex: Female

DRUGS (1)
  1. BOSENTAN [Suspect]
     Active Substance: BOSENTAN
     Indication: Right-to-left cardiac shunt
     Route: 048
     Dates: start: 2016

REACTIONS (1)
  - Right-to-left cardiac shunt [Unknown]

NARRATIVE: CASE EVENT DATE: 20210301
